FAERS Safety Report 23567430 (Version 3)
Quarter: 2024Q2

REPORT INFORMATION
  Report Type: Spontaneous
  Country: US (occurrence: US)
  Receive Date: 20240226
  Receipt Date: 20240404
  Transmission Date: 20240716
  Serious: No
  Sender: FDA-Public Use
  Company Number: US-Calliditas-2024CAL00234

PATIENT
  Age: 37 Year
  Sex: Male

DRUGS (1)
  1. TARPEYO [Suspect]
     Active Substance: BUDESONIDE
     Indication: IgA nephropathy
     Dosage: 16 MG (4MG CAPSULES) ONCE DAILY
     Route: 048
     Dates: start: 20240125, end: 20240221

REACTIONS (2)
  - Blood pressure increased [Recovered/Resolved]
  - Inappropriate schedule of product discontinuation [Recovered/Resolved]

NARRATIVE: CASE EVENT DATE: 20240221
